FAERS Safety Report 7003447-2 (Version None)
Quarter: 2010Q3

REPORT INFORMATION
  Report Type: 
  Country: None (occurrence: None)
  Receive Date: 20100920
  Receipt Date: 20100907
  Transmission Date: 20110219
  Serious: Yes (Hospitalization)
  Sender: FDA-Public Use
  Company Number: JP-WATSON-2010-12198

PATIENT
  Age: 65 Year
  Sex: Female

DRUGS (1)
  1. DOBUTAMINE HCL [Suspect]
     Indication: VASOSPASM
     Dosage: 6 UG/KG/MIN
     Route: 042

REACTIONS (1)
  - STRESS CARDIOMYOPATHY [None]
